FAERS Safety Report 13824958 (Version 2)
Quarter: 2017Q3

REPORT INFORMATION
  Report Type: Spontaneous
  Country: FI (occurrence: FI)
  Receive Date: 20170802
  Receipt Date: 20170818
  Transmission Date: 20171127
  Serious: Yes (Other)
  Sender: FDA-Public Use
  Company Number: FI-PFIZER INC-2017327031

PATIENT
  Age: 35 Year
  Sex: Female

DRUGS (1)
  1. SALAZOPYRIN EN [Suspect]
     Active Substance: SULFASALAZINE
     Indication: PSORIATIC ARTHROPATHY
     Dosage: 1000 MG, 2X/DAY
     Route: 048
     Dates: start: 201609, end: 20170701

REACTIONS (6)
  - Aphthous ulcer [Recovered/Resolved]
  - Oral discomfort [Recovered/Resolved]
  - Pollakiuria [Recovered/Resolved]
  - Urine abnormality [Recovered/Resolved]
  - Rash pruritic [Recovered/Resolved]
  - Arrhythmia [Recovered/Resolved]

NARRATIVE: CASE EVENT DATE: 201703
